FAERS Safety Report 6715499-5 (Version None)
Quarter: 2010Q2

REPORT INFORMATION
  Report Type: 
  Country: None (occurrence: None)
  Receive Date: 20100507
  Receipt Date: 20100427
  Transmission Date: 20101027
  Serious: Yes (Death, Other)
  Sender: FDA-Public Use
  Company Number: JP-ROCHE-697868

PATIENT
  Sex: Female
  Weight: 52 kg

DRUGS (17)
  1. CELLCEPT [Suspect]
     Indication: SYSTEMIC LUPUS ERYTHEMATOSUS
     Route: 048
     Dates: start: 20090130, end: 20090206
  2. CELLCEPT [Suspect]
     Route: 048
     Dates: start: 20090217, end: 20090310
  3. DENOSINE [Suspect]
     Indication: CYTOMEGALOVIRUS INFECTION
     Dosage: DOSE FORM: UNCERTAINTY, NOTE: DOSAGE IS UNCERTAIN.
     Route: 065
     Dates: start: 20090119, end: 20090130
  4. ITRIZOLE [Suspect]
     Indication: INFECTION PROPHYLAXIS
     Dosage: DOSE FORM: PERORAL LIQUID PREPARATION
     Route: 048
     Dates: start: 20081215, end: 20090310
  5. ADRENAL COMPLEX [Concomitant]
     Dosage: DRUG NAME: ADRENAL HORMONE PREPARATIONS, DOSE FORM: UNCERTAINTY
     Route: 065
  6. ALLOID G [Concomitant]
     Dosage: DOSE FORM: PERORAL LIQUID PREPARATION
     Route: 048
     Dates: start: 20080101, end: 20090310
  7. DOGMATYL [Concomitant]
     Dosage: DOSE FORM: MINUTE GRAIN
     Route: 048
     Dates: start: 20080126, end: 20090310
  8. PREDONINE [Concomitant]
     Dosage: NOTE: 25MG IN MORNING AND 20MG IN DAYTIME
     Route: 048
     Dates: start: 20081213, end: 20090129
  9. PREDONINE [Concomitant]
     Route: 048
     Dates: start: 20090130, end: 20090226
  10. PREDONINE [Concomitant]
     Dosage: NOTE: 20MG IN MORNING AND 15MG IN DAYTIME
     Route: 048
     Dates: start: 20090227, end: 20090311
  11. LASIX [Concomitant]
     Route: 048
     Dates: start: 20090109, end: 20090310
  12. GASTER D [Concomitant]
     Route: 048
     Dates: start: 20090109, end: 20090310
  13. ATELEC [Concomitant]
     Route: 048
     Dates: start: 20090215, end: 20090310
  14. LENDORMIN [Concomitant]
     Route: 048
     Dates: start: 20090220, end: 20090310
  15. RESLIN [Concomitant]
     Route: 048
     Dates: start: 20090302, end: 20090310
  16. SELBEX [Concomitant]
     Route: 048
     Dates: end: 20090310
  17. DEPAS [Concomitant]
     Route: 048
     Dates: end: 20090310

REACTIONS (4)
  - CYTOMEGALOVIRUS COLITIS [None]
  - PANCYTOPENIA [None]
  - PULMONARY ALVEOLAR HAEMORRHAGE [None]
  - RECTAL PERFORATION [None]
